FAERS Safety Report 4696812-X (Version None)
Quarter: 2005Q2

REPORT INFORMATION
  Report Type: 
  Country: None (occurrence: None)
  Receive Date: 20050622
  Receipt Date: 20050614
  Transmission Date: 20051028
  Serious: Yes (Hospitalization)
  Sender: FDA-Public Use
  Company Number: PHRM2005FR01825

PATIENT
  Age: 49 Year
  Sex: Male

DRUGS (5)
  1. ATARAX [Suspect]
     Route: 048
  2. POLARAMINE [Suspect]
     Route: 042
     Dates: start: 20050503, end: 20050503
  3. SOLU-MEDROL [Suspect]
     Dosage: 250 MG, QD
     Route: 042
     Dates: start: 20050503
  4. CELLCEPT [Suspect]
     Indication: RENAL TRANSPLANT
     Dosage: 1 G, QD
     Route: 048
     Dates: start: 20050503
  5. SIMULECT [Suspect]
     Indication: RENAL TRANSPLANT
     Dosage: 20 MG, QD
     Route: 042
     Dates: start: 20050503, end: 20050503

REACTIONS (6)
  - BLOOD LACTATE DEHYDROGENASE INCREASED [None]
  - DRUG INTOLERANCE [None]
  - HAEMOGLOBIN DECREASED [None]
  - HAEMOLYTIC URAEMIC SYNDROME [None]
  - HAPTOGLOBIN DECREASED [None]
  - THROMBOCYTOPENIA [None]
